FAERS Safety Report 8341139-8 (Version None)
Quarter: 2012Q2

REPORT INFORMATION
  Report Type: 
  Country: None (occurrence: None)
  Receive Date: 20120507
  Receipt Date: 20120423
  Transmission Date: 20120825
  Serious: Yes (Death, Other)
  Sender: FDA-Public Use
  Company Number: IN-RANBAXY-2012RR-55230

PATIENT
  Age: 50 Year
  Sex: Male

DRUGS (8)
  1. ATORVASTATIN CALCIUM [Concomitant]
     Indication: PRODUCT USED FOR UNKNOWN INDICATION
     Dosage: 10 MG/DAY
     Route: 065
  2. VENLAFAXINE [Suspect]
     Indication: DEPRESSION
     Dosage: 75 MG, UNK
     Route: 065
  3. VENLAFAXINE [Concomitant]
     Dosage: 150 MG/DAY
     Route: 065
  4. SERTRALINE HYDROCHLORIDE [Suspect]
     Indication: DEPRESSION
     Dosage: 50 MG/DAY
     Route: 065
  5. SERTRALINE HYDROCHLORIDE [Suspect]
     Dosage: 200 MG/DAY
     Route: 065
  6. ELTROXINE [Concomitant]
     Indication: PRODUCT USED FOR UNKNOWN INDICATION
     Dosage: 50 UG/DAY
     Route: 065
  7. SERTRALINE HYDROCHLORIDE [Suspect]
     Dosage: 150 MG, UNK
     Route: 065
  8. METFORMIN HCL [Concomitant]
     Indication: PRODUCT USED FOR UNKNOWN INDICATION
     Dosage: 1000 MG/DAY
     Route: 065

REACTIONS (2)
  - DRUG PRESCRIBING ERROR [None]
  - SEROTONIN SYNDROME [None]
